FAERS Safety Report 13776198 (Version 1)
Quarter: 2017Q3

REPORT INFORMATION
  Report Type: Spontaneous
  Country: US (occurrence: US)
  Receive Date: 20170721
  Receipt Date: 20170721
  Transmission Date: 20171127
  Serious: Yes (Hospitalization)
  Sender: FDA-Public Use
  Company Number: US-PFIZER INC-2017205956

PATIENT
  Age: 71 Year
  Sex: Female
  Weight: 57.61 kg

DRUGS (4)
  1. ROBITUSSIN (GUAIFENESIN) [Suspect]
     Active Substance: GUAIFENESIN
     Indication: CHRONIC OBSTRUCTIVE PULMONARY DISEASE
     Dosage: UNK
  2. ROBITUSSIN (GUAIFENESIN) [Interacting]
     Active Substance: GUAIFENESIN
     Indication: BRONCHITIS CHRONIC
  3. LISINOPRIL. [Interacting]
     Active Substance: LISINOPRIL
     Indication: HYPERTENSION
     Dosage: 20 MG, 1X/DAY
     Route: 048
     Dates: start: 20170426
  4. ROBITUSSIN (GUAIFENESIN) [Interacting]
     Active Substance: GUAIFENESIN
     Indication: ASTHMA

REACTIONS (5)
  - Abdominal discomfort [Recovered/Resolved]
  - Drug interaction [Unknown]
  - Drug intolerance [Unknown]
  - Dizziness [Unknown]
  - Medication error [Unknown]
